FAERS Safety Report 22261837 (Version 2)
Quarter: 2023Q2

REPORT INFORMATION
  Report Type: Report from Study
  Country: US (occurrence: US)
  Receive Date: 20230428
  Receipt Date: 20230523
  Transmission Date: 20230721
  Serious: Yes (Other)
  Sender: FDA-Public Use
  Company Number: US-ABBVIE-4743430

PATIENT
  Age: 53 Year
  Sex: Female

DRUGS (2)
  1. HUMIRA [Suspect]
     Active Substance: ADALIMUMAB
     Indication: Hidradenitis
     Route: 058
  2. DOXYCYCLINE [Suspect]
     Active Substance: DOXYCYCLINE
     Indication: Hidradenitis
     Route: 065

REACTIONS (13)
  - Heart valve stenosis [Unknown]
  - Rash [Recovered/Resolved]
  - Productive cough [Not Recovered/Not Resolved]
  - Hidradenitis [Not Recovered/Not Resolved]
  - Throat irritation [Unknown]
  - Skin discolouration [Unknown]
  - Heart valve replacement [Unknown]
  - Malaise [Unknown]
  - Pruritus [Not Recovered/Not Resolved]
  - Renal transplant [Unknown]
  - Pain [Unknown]
  - Adverse drug reaction [Unknown]
  - Therapeutic product effect delayed [Unknown]

NARRATIVE: CASE EVENT DATE: 20230301
